FAERS Safety Report 5084819-2 (Version None)
Quarter: 2006Q3

REPORT INFORMATION
  Report Type: 
  Country: None (occurrence: None)
  Receive Date: 20060815
  Receipt Date: 20060802
  Transmission Date: 20061208
  Serious: Yes (Hospitalization)
  Sender: FDA-Public Use
  Company Number: 2006-02001

PATIENT
  Age: 58 Year

DRUGS (12)
  1. VELCADE [Suspect]
     Indication: MULTIPLE MYELOMA
     Dosage: INTRAVENOUS
     Route: 042
  2. DOXORUBICIN HCL [Suspect]
     Indication: MULTIPLE MYELOMA
  3. DEXAMETHASONE [Suspect]
     Indication: MULTIPLE MYELOMA
  4. CYCLOPHOSPHAMIDE [Suspect]
  5. IBUPROFEN [Concomitant]
  6. AMITRIPTYLINE HYDROCHLORIDE [Concomitant]
  7. TAVOR (LORAZEPAM) [Concomitant]
  8. LORZAAR (LSOARTAN POTASSIUM) [Concomitant]
  9. NEXIUM [Concomitant]
  10. LACTULOSE [Concomitant]
  11. DURAGESIC-100 [Concomitant]
  12. OXAZEPAM [Concomitant]

REACTIONS (1)
  - EXTRAVASATION [None]
